FAERS Safety Report 7628976-X (Version None)
Quarter: 2011Q3

REPORT INFORMATION
  Report Type: 
  Country: None (occurrence: None)
  Receive Date: 20110722
  Receipt Date: 20100628
  Transmission Date: 20111222
  Serious: No
  Sender: FDA-Public Use
  Company Number: US-MYLANLABS-2010S1011581

PATIENT
  Sex: Male

DRUGS (2)
  1. BYSTOLIC [Suspect]
  2. CLONIDINE HYDROCHLORIDE [Suspect]

REACTIONS (1)
  - BLOOD PRESSURE INCREASED [None]
